FAERS Safety Report 20800442 (Version 1)
Quarter: 2022Q2

REPORT INFORMATION
  Report Type: Spontaneous
  Country: FR (occurrence: FR)
  Receive Date: 20220509
  Receipt Date: 20220509
  Transmission Date: 20220721
  Serious: Yes (Hospitalization, Other)
  Sender: FDA-Public Use
  Company Number: None

PATIENT
  Age: 69 Year
  Sex: Female
  Weight: 67 kg

DRUGS (7)
  1. REVLIMID [Suspect]
     Active Substance: LENALIDOMIDE
     Indication: B-cell lymphoma stage IV
     Dosage: 25 MG/J 21/28J
     Route: 048
     Dates: start: 20220306, end: 20220326
  2. LOVENOX [Suspect]
     Active Substance: ENOXAPARIN SODIUM
     Indication: Thrombosis prophylaxis
     Dosage: 1 INJECTION PAR JOUR, LE SOIR
     Route: 058
  3. TAFASITAMAB [Suspect]
     Active Substance: TAFASITAMAB
     Indication: B-cell lymphoma stage IV
     Route: 042
     Dates: start: 20220310
  4. BACTRIM [Suspect]
     Active Substance: SULFAMETHOXAZOLE\TRIMETHOPRIM
     Indication: Infection prophylaxis
     Dosage: 1 CP LE MATIN LE LUNDI, MERCREDI ET VENDREDI
     Route: 048
     Dates: start: 20220310, end: 20220326
  5. FILGRASTIM [Suspect]
     Active Substance: FILGRASTIM
     Indication: Chemotherapy toxicity attenuation
     Dosage: 30 MU PAR JOUR SI BESOIN (30 MU = 300 G DE FILGRASTIM)
     Route: 042
     Dates: start: 20220310
  6. RETACRIT [Suspect]
     Active Substance: EPOETIN ALFA-EPBX
     Indication: Chemotherapy toxicity attenuation
     Dosage: 30000 UI, 1 FOIS PAR SEMAINE SI BESOIN
     Route: 058
     Dates: start: 20220310
  7. VALACYCLOVIR HYDROCHLORIDE [Suspect]
     Active Substance: VALACYCLOVIR HYDROCHLORIDE
     Indication: Infection prophylaxis
     Dosage: 2 CP PAR JOUR (MATIN ET SOIR) TOUS LES JOURS
     Route: 048
     Dates: start: 20220310

REACTIONS (1)
  - Toxic skin eruption [Recovering/Resolving]

NARRATIVE: CASE EVENT DATE: 20220326
